FAERS Safety Report 8923937 (Version 1)
Quarter: 2012Q4

REPORT INFORMATION
  Report Type: Spontaneous
  Country: US (occurrence: None)
  Receive Date: 20121121
  Receipt Date: 20121121
  Transmission Date: 20130627
  Serious: No
  Sender: FDA-Public Use
  Company Number: None

PATIENT
  Age: 41 Year
  Sex: Female
  Weight: 59.42 kg

DRUGS (4)
  1. AMOXICILLIN [Suspect]
     Indication: RHEUMATIC FEVER
     Dates: start: 20121103, end: 20121112
  2. PENICILLIN [Suspect]
     Dates: start: 20121112
  3. LAMICTAL [Concomitant]
  4. SYNTHROID [Concomitant]

REACTIONS (1)
  - Unevaluable event [None]
